FAERS Safety Report 13399914 (Version 1)
Quarter: 2017Q2

REPORT INFORMATION
  Report Type: Report from Study
  Country: BR (occurrence: BR)
  Receive Date: 20170404
  Receipt Date: 20170404
  Transmission Date: 20170830
  Serious: Yes (Life-Threatening, Other)
  Sender: FDA-Public Use
  Company Number: PHHY2017BR038057

PATIENT
  Sex: Female
  Weight: 88 kg

DRUGS (10)
  1. SIMVASTATIN. [Suspect]
     Active Substance: SIMVASTATIN
     Indication: PRODUCT USED FOR UNKNOWN INDICATION
     Dosage: 20 MG, QHS
     Route: 048
  2. CITONEURIN [Suspect]
     Active Substance: CYANOCOBALAMIN\PYRIDOXINE HYDROCHLORIDE\THIAMINE
     Indication: NERVOUS SYSTEM DISORDER
  3. NEUTROFER [Suspect]
     Active Substance: FERROUS BISGLYCINATE
     Indication: IRON DEFICIENCY
     Dosage: 2 DF, QD
     Route: 048
  4. PREGABALINA [Suspect]
     Active Substance: PREGABALIN
     Indication: CARDIOVASCULAR DISORDER
     Dosage: 75 MG, Q12H
     Route: 048
  5. DIOSMIN [Suspect]
     Active Substance: DIOSMIN
     Indication: CARDIOVASCULAR DISORDER
     Dosage: 1 DF, Q12H (450MG/50MG)
     Route: 048
  6. ROSUCOR [Suspect]
     Active Substance: ROSUVASTATIN CALCIUM
     Indication: PRODUCT USED FOR UNKNOWN INDICATION
     Dosage: 10 MG, QHS (1 TABLET AT NIGHT)
     Route: 048
  7. ALPROZOLAM [Suspect]
     Active Substance: ALPRAZOLAM
     Indication: SLEEP DISORDER
     Dosage: 1 DF, QD
     Route: 048
  8. GALVUS MET [Suspect]
     Active Substance: METFORMIN HYDROCHLORIDE\VILDAGLIPTIN
     Indication: DIABETES MELLITUS
     Dosage: 1 DF (1000 MG OF METFORMIN/ 50 MG OF VILDAGLIPTIN), BID (TWICE A DAY) (IN BREAKFAST AND AT DINNER)
     Route: 048
  9. CITONEURIN [Suspect]
     Active Substance: CYANOCOBALAMIN\PYRIDOXINE HYDROCHLORIDE\THIAMINE
     Indication: CARDIOVASCULAR DISORDER
     Dosage: 1 DF, UNK
     Route: 048
  10. AZUKON [Suspect]
     Active Substance: GLICLAZIDE
     Indication: PRODUCT USED FOR UNKNOWN INDICATION
     Dosage: 2 DF, QD (2 TABLETS AFTER LUNCH)
     Route: 048

REACTIONS (14)
  - Visual impairment [Recovering/Resolving]
  - Blood glucose increased [Recovering/Resolving]
  - Osteoarthritis [Unknown]
  - Body height decreased [Unknown]
  - Intervertebral disc space narrowing [Recovering/Resolving]
  - Corneal deposits [Recovering/Resolving]
  - Apparent death [Recovering/Resolving]
  - Aortic injury [Recovering/Resolving]
  - General physical health deterioration [Unknown]
  - Malaise [Recovering/Resolving]
  - Hypoacusis [Unknown]
  - Mobility decreased [Recovering/Resolving]
  - Hernia [Not Recovered/Not Resolved]
  - Pain [Recovering/Resolving]
